FAERS Safety Report 7648208-6 (Version None)
Quarter: 2011Q3

REPORT INFORMATION
  Report Type: 
  Country: None (occurrence: None)
  Receive Date: 20110801
  Receipt Date: 20110725
  Transmission Date: 20111222
  Serious: Yes (Hospitalization, Other)
  Sender: FDA-Public Use
  Company Number: US-PFIZER INC-2011169527

PATIENT
  Sex: Male

DRUGS (1)
  1. PREMARIN [Suspect]
     Indication: OFF LABEL USE
     Dosage: UNK

REACTIONS (2)
  - ANAPHYLACTOID REACTION [None]
  - INJECTION SITE INFLAMMATION [None]
